FAERS Safety Report 9067209 (Version 1)
Quarter: 2013Q1

REPORT INFORMATION
  Report Type: Report from Study
  Country: US (occurrence: US)
  Receive Date: 20130131
  Receipt Date: 20130131
  Transmission Date: 20140127
  Serious: No
  Sender: FDA-Public Use
  Company Number: US-ABBOTT-12P-163-0999185-00

PATIENT
  Age: 25 Year
  Sex: Female

DRUGS (6)
  1. HUMIRA [Suspect]
     Indication: CROHN^S DISEASE
     Dosage: LOADING DOSE
     Dates: start: 20121003, end: 20121003
  2. HUMIRA [Suspect]
     Dosage: LOADING DOSE
     Dates: start: 20121017
  3. PENTASA [Concomitant]
     Indication: CROHN^S DISEASE
     Dosage: 2 TABS IN AM, 2 TABS IN AFTERNOON, 2 TABS AT NIGHT
  4. ZOLOFT [Concomitant]
     Indication: DEPRESSION
     Dosage: 1 TAB DAILY
  5. PRILOSEC [Concomitant]
     Indication: DYSPEPSIA
  6. ENTOCORT [Concomitant]
     Indication: CROHN^S DISEASE

REACTIONS (2)
  - Injection site haemorrhage [Recovering/Resolving]
  - Injection site pruritus [Recovered/Resolved]
